FAERS Safety Report 5644370-5 (Version None)
Quarter: 2008Q1

REPORT INFORMATION
  Report Type: 
  Country: None (occurrence: None)
  Receive Date: 20080229
  Receipt Date: 20080225
  Transmission Date: 20080703
  Serious: Yes (Hospitalization)
  Sender: FDA-Public Use
  Company Number: JP-BRISTOL-MYERS SQUIBB COMPANY-14068514

PATIENT
  Age: 52 Year
  Sex: Male

DRUGS (7)
  1. TAXOL [Suspect]
     Indication: NON-SMALL CELL LUNG CANCER
     Route: 041
     Dates: start: 20071214, end: 20080111
  2. PARAPLATIN [Suspect]
     Indication: NON-SMALL CELL LUNG CANCER
     Route: 041
     Dates: start: 20071214, end: 20071214
  3. CEFAMEZIN [Suspect]
     Indication: INFECTION PROPHYLAXIS
     Route: 041
     Dates: start: 20080128, end: 20080128
  4. CARBAZOCHROME SODIUM SULFONATE [Concomitant]
     Route: 048
     Dates: end: 20080128
  5. URSO 250 [Concomitant]
     Route: 048
     Dates: end: 20080128
  6. HUMALOG [Concomitant]
     Dosage: DOSE VALUE: 16 IU + 15 IU
     Route: 058
     Dates: end: 20080128
  7. NEUTROGIN [Concomitant]
     Dosage: THERAPY DATES: 26-DEC-2007 TO 26-DEC-2007 01-JAN-2008 TO 03-JAN-2008
     Route: 058
     Dates: start: 20080125, end: 20080126

REACTIONS (1)
  - ACUTE RESPIRATORY DISTRESS SYNDROME [None]
